FAERS Safety Report 25030251 (Version 2)
Quarter: 2025Q3

REPORT INFORMATION
  Report Type: Report from Study
  Country: US (occurrence: US)
  Receive Date: 20250303
  Receipt Date: 20250802
  Transmission Date: 20251021
  Serious: Yes (Other)
  Sender: ALEXION PHARMACEUTICALS
  Company Number: US-AstraZeneca-CH-00813957A

PATIENT
  Sex: Male

DRUGS (1)
  1. OSIMERTINIB [Suspect]
     Active Substance: OSIMERTINIB
     Route: 065

REACTIONS (6)
  - Cerebrovascular accident [Unknown]
  - Brain injury [Unknown]
  - Concussion [Unknown]
  - Fall [Unknown]
  - Blindness [Unknown]
  - Aphasia [Unknown]
